FAERS Safety Report 21458376 (Version 1)
Quarter: 2022Q4

REPORT INFORMATION
  Report Type: Spontaneous
  Country: ES (occurrence: ES)
  Receive Date: 20221014
  Receipt Date: 20221014
  Transmission Date: 20230113
  Serious: Yes (Hospitalization)
  Sender: FDA-Public Use
  Company Number: ES-ROCHE-2733058

PATIENT
  Age: 32 Year
  Sex: Female
  Weight: 54.6 kg

DRUGS (15)
  1. PACLITAXEL [Suspect]
     Active Substance: PACLITAXEL
     Indication: Breast cancer
     Dosage: 90 MG/M2
     Route: 042
     Dates: start: 20201201
  2. PACLITAXEL [Suspect]
     Active Substance: PACLITAXEL
     Dosage: MOST RECENT DOSE PRIOR TO SAE
     Route: 042
     Dates: start: 20201208
  3. CARBOPLATIN [Suspect]
     Active Substance: CARBOPLATIN
     Indication: Breast cancer
     Dosage: UNK
     Route: 042
     Dates: start: 20201201
  4. CARBOPLATIN [Suspect]
     Active Substance: CARBOPLATIN
     Dosage: MOST RECENT DOSE PRIOR TO SAE, ADMINISTERED AT AUC (AREA UNDER THE CURVE) 2
     Dates: start: 20201208
  5. TRASTUZUMAB [Suspect]
     Active Substance: TRASTUZUMAB
     Indication: Breast cancer
     Dosage: 8 MG/KG (LOADING DOSE)
     Route: 042
     Dates: start: 20201201
  6. TRASTUZUMAB [Suspect]
     Active Substance: TRASTUZUMAB
     Dosage: 6 MG/KG
     Route: 042
  7. TRASTUZUMAB [Suspect]
     Active Substance: TRASTUZUMAB
     Dosage: MOST RECENT DOSE PRIOR TO SAE
     Dates: start: 20201201
  8. PERTUZUMAB [Suspect]
     Active Substance: PERTUZUMAB
     Indication: Breast cancer
     Dosage: LOADING DOSE
     Route: 042
     Dates: start: 20201201
  9. PERTUZUMAB [Suspect]
     Active Substance: PERTUZUMAB
     Dosage: 420 MG (MAINTAINANCE DOSE)
     Route: 042
     Dates: start: 20201201
  10. METOCLOPRAMIDE [Concomitant]
     Active Substance: METOCLOPRAMIDE
     Dosage: 10 MG, EVERY 8 HOURS
     Dates: start: 20201215, end: 20201215
  11. DEXAMETHASONE [Concomitant]
     Active Substance: DEXAMETHASONE
     Dosage: 4 MG, 1X/DAY
     Dates: start: 20201215, end: 20201215
  12. ACETAMINOPHEN [Concomitant]
     Active Substance: ACETAMINOPHEN
     Dosage: 500 MG, EVERY 8 HOURS
     Dates: start: 20201215, end: 20201215
  13. METAMIZOLE MAGNESIUM [Concomitant]
     Active Substance: METAMIZOLE MAGNESIUM
     Dosage: 575 MG, EVERY 8 HOURS
     Dates: start: 20201215, end: 20201215
  14. ONDANSETRON [Concomitant]
     Active Substance: ONDANSETRON
     Dosage: 4 MG, EVERY 8 HOURS
     Dates: start: 20201215, end: 20201215
  15. MORPHINE [Concomitant]
     Active Substance: MORPHINE
     Dosage: 10 MG, EVERY 4 HRS
     Dates: start: 20201213, end: 20201215

REACTIONS (2)
  - Abdominal pain [Recovered/Resolved]
  - Intestinal obstruction [Recovered/Resolved]

NARRATIVE: CASE EVENT DATE: 20201211
